FAERS Safety Report 9248447 (Version 2)
Quarter: 2013Q2

REPORT INFORMATION
  Report Type: Spontaneous
  Country: JP (occurrence: JP)
  Receive Date: 20130423
  Receipt Date: 20130429
  Transmission Date: 20140414
  Serious: Yes (Hospitalization)
  Sender: FDA-Public Use
  Company Number: JP-PFIZER INC-2013125757

PATIENT
  Age: 36 Year
  Sex: Male

DRUGS (1)
  1. RELPAX [Suspect]
     Dosage: UNK
     Route: 048

REACTIONS (2)
  - Spinal column stenosis [Unknown]
  - Back pain [Unknown]
